FAERS Safety Report 16974618 (Version 1)
Quarter: 2019Q4

REPORT INFORMATION
  Report Type: Spontaneous
  Country: US (occurrence: US)
  Receive Date: 20190913
  Receipt Date: 20190913
  Transmission Date: 20200122
  Serious: Yes (Life-Threatening, Hospitalization, Other)
  Sender: FDA-Public Use
  Company Number: None

PATIENT
  Age: 52 Year
  Sex: Female
  Weight: 57.61 kg

DRUGS (1)
  1. AZITHROMYCIN TABLETS USP 250MG [Suspect]
     Active Substance: AZITHROMYCIN
     Indication: SINUSITIS
     Dosage: ?          QUANTITY:2 TABLETS;OTHER FREQUENCY:DAY 1 2TABS,DAY 1;?
     Route: 048
     Dates: start: 20161213, end: 20161213

REACTIONS (1)
  - Stevens-Johnson syndrome [None]

NARRATIVE: CASE EVENT DATE: 20161217
